FAERS Safety Report 15272371 (Version 1)
Quarter: 2018Q3

REPORT INFORMATION
  Report Type: Spontaneous
  Country: US (occurrence: US)
  Receive Date: 20180813
  Receipt Date: 20180813
  Transmission Date: 20181010
  Serious: No
  Sender: FDA-Public Use
  Company Number: US-UPSHER-SMITH LABORATORIES, LLC-2017USL00307

PATIENT
  Sex: Male

DRUGS (1)
  1. CHLORPROMAZINE HYDROCHLORIDE. [Suspect]
     Active Substance: CHLORPROMAZINE HYDROCHLORIDE
     Indication: PSYCHOTIC DISORDER
     Dosage: 200 MG, 3X/DAY
     Route: 048
     Dates: start: 201704

REACTIONS (5)
  - Oral mucosal eruption [Not Recovered/Not Resolved]
  - Wrong technique in product usage process [Recovered/Resolved]
  - Chemical burn of gastrointestinal tract [Not Recovered/Not Resolved]
  - Administration site discolouration [Unknown]
  - Tongue discomfort [Not Recovered/Not Resolved]

NARRATIVE: CASE EVENT DATE: 2017
